FAERS Safety Report 11585789 (Version 1)
Quarter: 2015Q3

REPORT INFORMATION
  Report Type: Spontaneous
  Country: US (occurrence: US)
  Receive Date: 20150916
  Receipt Date: 20150916
  Transmission Date: 20151125
  Serious: No
  Sender: FDA-Public Use
  Company Number: US-ELI_LILLY_AND_COMPANY-US200804000428

PATIENT
  Age: 61 Year
  Sex: Male

DRUGS (6)
  1. CALCIUM [Concomitant]
     Active Substance: CALCIUM
  2. ANALGESICS [Concomitant]
     Active Substance: UNSPECIFIED INGREDIENT
  3. FORTEO [Suspect]
     Active Substance: TERIPARATIDE
     Dates: start: 200803
  4. CALCITONIN [Concomitant]
     Active Substance: CALCITONIN
  5. FORTEO [Suspect]
     Active Substance: TERIPARATIDE
     Dates: start: 2006
  6. VITAMIN D [Concomitant]
     Active Substance: CHOLECALCIFEROL

REACTIONS (1)
  - Back pain [Not Recovered/Not Resolved]

NARRATIVE: CASE EVENT DATE: 200803
